FAERS Safety Report 6617507-9 (Version None)
Quarter: 2010Q1

REPORT INFORMATION
  Report Type: 
  Country: None (occurrence: None)
  Receive Date: 20100308
  Receipt Date: 20100224
  Transmission Date: 20100710
  Serious: Yes (Hospitalization)
  Sender: FDA-Public Use
  Company Number: JP-EISAI INC.-E3810-03572-SPO-JP

PATIENT
  Age: 46 Year
  Sex: Male
  Weight: 62 kg

DRUGS (3)
  1. PARIET (RABEPRAZOLE) [Suspect]
     Indication: HELICOBACTER INFECTION
     Route: 048
     Dates: start: 20091105, end: 20091111
  2. KLARICID [Suspect]
     Indication: HELICOBACTER INFECTION
     Route: 048
     Dates: start: 20091105, end: 20091111
  3. SAWACILLIN [Concomitant]
     Indication: HELICOBACTER INFECTION
     Route: 048
     Dates: start: 20091105, end: 20091111

REACTIONS (3)
  - DELIRIUM [None]
  - DIZZINESS [None]
  - TINNITUS [None]
